FAERS Safety Report 8272600-2 (Version None)
Quarter: 2012Q2

REPORT INFORMATION
  Report Type: 
  Country: None (occurrence: None)
  Receive Date: 20120410
  Receipt Date: 20120329
  Transmission Date: 20120825
  Serious: Yes (Other)
  Sender: FDA-Public Use
  Company Number: CA-ELI_LILLY_AND_COMPANY-CA201202001606

PATIENT
  Age: 68 Year
  Sex: Female

DRUGS (13)
  1. NAPROSYN [Concomitant]
  2. PERCOCET [Concomitant]
  3. FLEXERIL [Concomitant]
  4. MOTILIUM [Concomitant]
  5. LASIX [Concomitant]
  6. SYNTHROID [Concomitant]
  7. PANTOPRAZOLE [Concomitant]
  8. SPIRIVA [Concomitant]
  9. FORTEO [Suspect]
     Indication: OSTEOPOROSIS
     Dosage: 20 UG, QD
     Route: 058
     Dates: start: 20110920, end: 20120109
  10. SCOPOLAMINE [Concomitant]
  11. VITAMIN D [Concomitant]
  12. ATIVAN [Concomitant]
  13. POTASSIUM [Concomitant]

REACTIONS (1)
  - FOOT OPERATION [None]
